FAERS Safety Report 7660263-6 (Version None)
Quarter: 2011Q3

REPORT INFORMATION
  Report Type: 
  Country: None (occurrence: None)
  Receive Date: 20110805
  Receipt Date: 20110725
  Transmission Date: 20111222
  Serious: Yes (Other)
  Sender: FDA-Public Use
  Company Number: PHFR2011GB04428

PATIENT
  Age: 46 Year
  Sex: Female

DRUGS (1)
  1. TEGRETOL [Suspect]
     Indication: MOOD ALTERED
     Dosage: 600 MG, UNK

REACTIONS (1)
  - IRON OVERLOAD [None]
